FAERS Safety Report 15170609 (Version 2)
Quarter: 2018Q3

REPORT INFORMATION
  Report Type: Spontaneous
  Country: US (occurrence: US)
  Receive Date: 20180720
  Receipt Date: 20180731
  Transmission Date: 20181010
  Serious: Yes (Other)
  Sender: FDA-Public Use
  Company Number: US-009507513-1807USA009117

PATIENT
  Sex: Male

DRUGS (9)
  1. ZOCOR [Suspect]
     Active Substance: SIMVASTATIN
     Indication: TYPE IIA HYPERLIPIDAEMIA
     Dosage: 20 MG, QD (REPORTED AS 20 MG/D)
     Route: 048
  2. COLESEVELAM HYDROCHLORIDE. [Suspect]
     Active Substance: COLESEVELAM HYDROCHLORIDE
     Indication: TYPE IIA HYPERLIPIDAEMIA
     Dosage: 1.875 G TWICE DAILY
  3. ZOCOR [Suspect]
     Active Substance: SIMVASTATIN
     Dosage: TITRATION TO 60 MG, QD (REPORTED AS 60 MG/D)
     Route: 048
  4. COLESEVELAM HYDROCHLORIDE. [Suspect]
     Active Substance: COLESEVELAM HYDROCHLORIDE
     Dosage: 2.5 G/D
  5. NIACIN. [Suspect]
     Active Substance: NIACIN
     Dosage: 2 G/D
  6. ZETIA [Suspect]
     Active Substance: EZETIMIBE
     Indication: TYPE IIA HYPERLIPIDAEMIA
     Dosage: 10 MG, QD (REPORTED AS 10 MG/D)
     Route: 048
  7. ROSUVASTATIN. [Suspect]
     Active Substance: ROSUVASTATIN
     Indication: TYPE IIA HYPERLIPIDAEMIA
     Dosage: 40 MG, QD (40 MG/D)
  8. ZOCOR [Suspect]
     Active Substance: SIMVASTATIN
     Dosage: TITRATION UP TO 40 MG, QD ((REPORTED AS 40MG/D)
  9. NIACIN. [Suspect]
     Active Substance: NIACIN
     Indication: TYPE IIA HYPERLIPIDAEMIA
     Dosage: 1 G EVERY EVENING

REACTIONS (1)
  - Drug ineffective [Unknown]
